FAERS Safety Report 22533629 (Version 1)
Quarter: 2023Q2

REPORT INFORMATION
  Report Type: Spontaneous
  Country: US (occurrence: US)
  Receive Date: 20230608
  Receipt Date: 20230608
  Transmission Date: 20230722
  Serious: No
  Sender: FDA-Public Use
  Company Number: US-DENDREON PHARMACEUTICAL LLC-2023DEN000105

PATIENT

DRUGS (11)
  1. PROVENGE [Suspect]
     Active Substance: SIPULEUCEL-T
     Indication: Prostate cancer metastatic
     Dosage: DOSE 1
     Route: 042
     Dates: start: 20230210, end: 20230210
  2. PROVENGE [Suspect]
     Active Substance: SIPULEUCEL-T
     Dosage: DOSE 2
     Route: 042
     Dates: start: 20230223, end: 20230223
  3. PROVENGE [Suspect]
     Active Substance: SIPULEUCEL-T
     Dosage: DOSE 3
     Route: 042
     Dates: start: 20230309, end: 20230309
  4. ABIRATERONE [Concomitant]
     Active Substance: ABIRATERONE
     Indication: Prostate cancer metastatic
     Dosage: UNK, UNKNOWN
     Route: 065
  5. SILODOSIN [Concomitant]
     Active Substance: SILODOSIN
     Indication: Product used for unknown indication
     Dosage: UNK, UNKNOWN
     Route: 065
  6. PREDNISONE [Concomitant]
     Active Substance: PREDNISONE
     Indication: Product used for unknown indication
     Dosage: 5 MILLIGRAM, UNKNOWN
     Route: 065
  7. NOVOLIN LENTE [Concomitant]
     Indication: Type 1 diabetes mellitus
     Dosage: UNK, UNKNOWN
     Route: 065
  8. TYLENOL [Concomitant]
     Active Substance: ACETAMINOPHEN
     Indication: Premedication
     Dosage: 1000 MILLIGRAM, SINGLE
     Route: 048
     Dates: start: 20230210, end: 20230210
  9. BENADRYL [Concomitant]
     Active Substance: DIPHENHYDRAMINE HYDROCHLORIDE
     Indication: Premedication
     Dosage: 25 MILLIGRAM, SINGLE
     Route: 048
     Dates: start: 20230210, end: 20230210
  10. PEPCID [Concomitant]
     Active Substance: FAMOTIDINE
     Indication: Premedication
     Dosage: 10 MILLIGRAM, SINGLE
     Route: 042
     Dates: start: 20230210, end: 20230210
  11. PEPCID [Concomitant]
     Active Substance: FAMOTIDINE
     Dosage: 20 MILLIGRAM, BID
     Route: 048
     Dates: start: 202302

REACTIONS (4)
  - Headache [Recovering/Resolving]
  - Chromaturia [Recovered/Resolved]
  - Chills [Recovered/Resolved]
  - Nausea [Recovered/Resolved]

NARRATIVE: CASE EVENT DATE: 20230223
